FAERS Safety Report 9642055 (Version 1)
Quarter: 2013Q4

REPORT INFORMATION
  Report Type: Spontaneous
  Country: CA (occurrence: CA)
  Receive Date: 20131023
  Receipt Date: 20131023
  Transmission Date: 20140711
  Serious: Yes (Hospitalization)
  Sender: FDA-Public Use
  Company Number: PHHY2013CA115864

PATIENT
  Age: 77 Year
  Sex: Male

DRUGS (2)
  1. ALLOPURINOL [Suspect]
  2. CORICIDIN [Suspect]

REACTIONS (8)
  - Nasopharyngitis [Recovered/Resolved]
  - Prerenal failure [Recovered/Resolved]
  - Stevens-Johnson syndrome [Recovered/Resolved]
  - Enanthema [Recovered/Resolved]
  - Pyrexia [Recovered/Resolved]
  - Chills [Recovered/Resolved]
  - Blister [Recovered/Resolved]
  - Erythema [Recovered/Resolved]
